FAERS Safety Report 5691870-8 (Version None)
Quarter: 2008Q2

REPORT INFORMATION
  Report Type: 
  Country: None (occurrence: None)
  Receive Date: 20080401
  Receipt Date: 20080401
  Transmission Date: 20081010
  Serious: Yes (Hospitalization)
  Sender: FDA-Public Use
  Company Number: None

PATIENT
  Sex: Female
  Weight: 76.07 kg

DRUGS (6)
  1. SPRYCEL [Suspect]
     Indication: POLYCYTHAEMIA VERA
     Dosage: 100 MG DAILY PO
     Route: 048
     Dates: start: 20080319, end: 20080328
  2. LIPITOR [Concomitant]
  3. TOPROL-XL [Concomitant]
  4. ASPIRIN [Concomitant]
  5. SYNTHROID [Concomitant]
  6. PLAVIX [Concomitant]

REACTIONS (2)
  - CARDIAC DISORDER [None]
  - DYSPNOEA EXERTIONAL [None]
